FAERS Safety Report 7802235-4 (Version None)
Quarter: 2011Q4

REPORT INFORMATION
  Report Type: 
  Country: None (occurrence: None)
  Receive Date: 20111007
  Receipt Date: 20111003
  Transmission Date: 20120403
  Serious: Yes (Death)
  Sender: FDA-Public Use
  Company Number: TN-SANOFI-AVENTIS-2011SA064538

PATIENT
  Age: 72 Year
  Sex: Male

DRUGS (7)
  1. HYPOTEN [Concomitant]
     Route: 048
     Dates: end: 20110529
  2. PLAVIX [Suspect]
     Indication: MYOCARDIAL INFARCTION
     Route: 048
     Dates: start: 20091201, end: 20110529
  3. CRESTOR [Concomitant]
     Route: 048
     Dates: end: 20110529
  4. ASPEGIC 325 [Concomitant]
     Route: 048
     Dates: end: 20110529
  5. CORVASAL [Concomitant]
     Route: 048
     Dates: end: 20110529
  6. PLAVIX [Suspect]
     Indication: STENT PLACEMENT
     Route: 048
     Dates: start: 20091201, end: 20110529
  7. INSULATARD NPH HUMAN [Concomitant]
     Route: 058
     Dates: end: 20110529

REACTIONS (1)
  - HEPATIC NEOPLASM MALIGNANT [None]
